FAERS Safety Report 17899014 (Version 1)
Quarter: 2020Q2

REPORT INFORMATION
  Report Type: Spontaneous
  Country: DE (occurrence: DE)
  Receive Date: 20200615
  Receipt Date: 20200615
  Transmission Date: 20200714
  Serious: Yes (Hospitalization)
  Sender: FDA-Public Use
  Company Number: DE-TEVA-2020-DE-1247542

PATIENT
  Age: 74 Year
  Sex: Male
  Weight: 59 kg

DRUGS (10)
  1. CANDESARTAN. [Concomitant]
     Active Substance: CANDESARTAN
     Dosage: 4 MILLIGRAM DAILY;  1-0-0-0
     Route: 048
  2. ATORVASTATIN [Concomitant]
     Active Substance: ATORVASTATIN
     Dosage: 20 MILLIGRAM DAILY; 0-0-1-0
     Route: 048
  3. CARBOPLATIN. [Suspect]
     Active Substance: CARBOPLATIN
     Dosage: NK NK
     Route: 042
  4. APLONA 4,9G/BEUTEL [Concomitant]
     Dosage: 3 DOSAGE FORMS DAILY; 1-1-1-0
     Route: 048
  5. BICANORM [Concomitant]
     Active Substance: SODIUM BICARBONATE
     Dosage: 9 DOSAGE FORMS DAILY; 3-3-3-0
     Route: 048
  6. KREON 25000 [Concomitant]
     Active Substance: PANCRELIPASE
     Dosage: 3 DOSAGE FORMS DAILY; 1-1-1-0
     Route: 048
  7. ETOPOSID [Suspect]
     Active Substance: ETOPOSIDE
     Dosage: NK NK
     Route: 042
  8. PANTOPRAZOL [Concomitant]
     Active Substance: PANTOPRAZOLE SODIUM
     Dosage: 40 MILLIGRAM DAILY; 1-0-0-0
     Route: 048
  9. TAMSULOSIN [Concomitant]
     Active Substance: TAMSULOSIN
     Dosage: .4 MILLIGRAM DAILY;  1-0-0-0
     Route: 048
  10. COLECALCIFEROL (VITAMIN D) [Concomitant]
     Dosage: 20000 IU / WEEK, SUNDAY
     Route: 048

REACTIONS (4)
  - Oliguria [Unknown]
  - Abdominal pain upper [Unknown]
  - Abdominal pain [Unknown]
  - Electrolyte imbalance [Unknown]
